FAERS Safety Report 4880427-4 (Version None)
Quarter: 2005Q4

REPORT INFORMATION
  Report Type: 
  Country: None (occurrence: None)
  Receive Date: 20051223
  Receipt Date: 20051006
  Transmission Date: 20060501
  Serious: No
  Sender: FDA-Public Use
  Company Number: 05P-163-0305973-00

PATIENT
  Age: 74 Year
  Sex: Female
  Weight: 88.905 kg

DRUGS (14)
  1. HUMIRA [Suspect]
     Indication: RHEUMATOID ARTHRITIS
     Dosage: SEE IMAGE
     Route: 058
     Dates: start: 20050801, end: 20050909
  2. HUMIRA [Suspect]
     Indication: RHEUMATOID ARTHRITIS
     Dosage: SEE IMAGE
     Route: 058
     Dates: start: 20051003
  3. VICODIN [Concomitant]
  4. HUMULIN 70/30 [Concomitant]
  5. CRESTOR [Concomitant]
  6. ASPIRIN [Concomitant]
  7. METOPROLOL [Concomitant]
  8. CLOPIDOGREL BISULFATE [Concomitant]
  9. PREDNISONE [Concomitant]
  10. FEXOFENADINE HYDROCHLORIDE [Concomitant]
  11. FUROSEMIDE [Concomitant]
  12. TELMISARTAN [Concomitant]
  13. ASCORBIC ACID [Concomitant]
  14. FISH OIL [Concomitant]

REACTIONS (1)
  - FURUNCLE [None]
